FAERS Safety Report 5699333-0 (Version None)
Quarter: 2008Q2

REPORT INFORMATION
  Report Type: 
  Country: None (occurrence: None)
  Receive Date: 20080404
  Receipt Date: 20080401
  Transmission Date: 20081010
  Serious: Yes (Hospitalization)
  Sender: FDA-Public Use
  Company Number: 08-177

PATIENT
  Age: 16 Year
  Sex: Female
  Weight: 49.8957 kg

DRUGS (2)
  1. ALEVE [Suspect]
     Dosage: DAILY, ORAL
     Route: 048
     Dates: start: 20080326
  2. EXTRA STRENGTH TYLENOL [Suspect]
     Dosage: DAILY, ORAL
     Route: 048
     Dates: end: 20080326

REACTIONS (6)
  - DEPRESSED LEVEL OF CONSCIOUSNESS [None]
  - INCORRECT DOSE ADMINISTERED [None]
  - REFUSAL OF TREATMENT BY PATIENT [None]
  - RESPIRATORY RATE DECREASED [None]
  - SOMNOLENCE [None]
  - TOXICOLOGIC TEST ABNORMAL [None]
